FAERS Safety Report 10648127 (Version 1)
Quarter: 2014Q4

REPORT INFORMATION
  Report Type: Spontaneous
  Country: US (occurrence: None)
  Receive Date: 20141210
  Receipt Date: 20141210
  Transmission Date: 20150529
  Serious: Yes (Hospitalization)
  Sender: FDA-Public Use
  Company Number: FK201405952

PATIENT
  Age: 61 Year
  Sex: Female

DRUGS (6)
  1. CEFOTAXIME [Concomitant]
     Active Substance: CEFOTAXIME\CEFOTAXIME SODIUM
  2. GENTAMICIN. [Suspect]
     Active Substance: GENTAMICIN
     Indication: LOCALISED INFECTION
     Route: 014
  3. CEFTRIAXONE. [Concomitant]
     Active Substance: CEFTRIAXONE
  4. CEFAZOLIN [Concomitant]
     Active Substance: CEFAZOLIN
  5. VANCOMYCIN [Suspect]
     Active Substance: VANCOMYCIN
     Indication: LOCALISED INFECTION
     Route: 014
  6. VANCOMYCIN [Suspect]
     Active Substance: VANCOMYCIN
     Indication: ANTIBIOTIC PROPHYLAXIS
     Route: 014

REACTIONS (1)
  - Haemolytic anaemia [None]
